FAERS Safety Report 5624927-8 (Version None)
Quarter: 2008Q1

REPORT INFORMATION
  Report Type: 
  Country: None (occurrence: None)
  Receive Date: 20080213
  Receipt Date: 20080204
  Transmission Date: 20080703
  Serious: Yes (Disabling)
  Sender: FDA-Public Use
  Company Number: US-SANOFI-SYNTHELABO-A03200800027

PATIENT
  Sex: Male
  Weight: 63.1 kg

DRUGS (9)
  1. ELIGARD [Suspect]
     Indication: PROSTATE CANCER
     Dosage: 30 MG EVERY THREE MONTHS
     Route: 058
     Dates: start: 20070101, end: 20071028
  2. ZAROXOLYN [Concomitant]
     Indication: DRUG USE FOR UNKNOWN INDICATION
     Route: 065
  3. MIRALAX [Concomitant]
     Indication: DRUG USE FOR UNKNOWN INDICATION
     Dosage: UNK
     Route: 065
  4. VITAMIN D [Concomitant]
     Indication: DRUG USE FOR UNKNOWN INDICATION
     Dosage: UNK
     Route: 065
  5. M.V.I. [Concomitant]
     Indication: DRUG USE FOR UNKNOWN INDICATION
     Dosage: UNK
     Route: 065
  6. COUMADIN [Concomitant]
     Indication: DRUG USE FOR UNKNOWN INDICATION
     Dosage: UNK
     Route: 065
  7. ZOLOFT [Concomitant]
     Indication: DEPRESSION
     Route: 065
  8. SPIRONOLACTONE [Concomitant]
     Indication: CARDIAC FAILURE CONGESTIVE
     Route: 065
     Dates: start: 20040101
  9. LASIX [Concomitant]
     Indication: CARDIAC FAILURE CONGESTIVE
     Route: 065
     Dates: start: 19920101

REACTIONS (6)
  - ASTHENIA [None]
  - BEDRIDDEN [None]
  - FALL [None]
  - MOBILITY DECREASED [None]
  - MUSCLE DISORDER [None]
  - RESPIRATORY DISORDER [None]
